FAERS Safety Report 12788768 (Version 2)
Quarter: 2016Q4

REPORT INFORMATION
  Report Type: Spontaneous
  Country: US (occurrence: US)
  Receive Date: 20160928
  Receipt Date: 20161003
  Transmission Date: 20170207
  Serious: No
  Sender: FDA-Public Use
  Company Number: US-BAYER-2016-181850

PATIENT
  Age: 13 Month
  Sex: Female

DRUGS (1)
  1. MIRALAX [Suspect]
     Active Substance: POLYETHYLENE GLYCOL 3350
     Indication: GASTROINTESTINAL DISORDER
     Route: 048

REACTIONS (4)
  - Underdose [None]
  - Drug administered to patient of inappropriate age [Not Recovered/Not Resolved]
  - Product use issue [Not Recovered/Not Resolved]
  - Circumstance or information capable of leading to medication error [None]
